FAERS Safety Report 10354565 (Version 2)
Quarter: 2014Q3

REPORT INFORMATION
  Report Type: Report from Study
  Country: US (occurrence: US)
  Receive Date: 20140731
  Receipt Date: 20140912
  Transmission Date: 20150326
  Serious: Yes (Other)
  Sender: FDA-Public Use
  Company Number: US-SA-2014SA099604

PATIENT
  Age: 61 Year
  Sex: Male

DRUGS (5)
  1. LANTUS SOLOSTAR [Suspect]
     Active Substance: INSULIN GLARGINE
     Indication: DIABETES MELLITUS
     Dosage: 35-40 UNIT
     Route: 065
     Dates: start: 20140629
  2. SOLOSTAR [Concomitant]
     Active Substance: DEVICE
  3. JANUMET [Concomitant]
     Active Substance: METFORMIN HYDROCHLORIDE\SITAGLIPTIN PHOSPHATE
     Indication: BLOOD GLUCOSE
     Dosage: 50-1000 MG
  4. LISINOPRIL. [Concomitant]
     Active Substance: LISINOPRIL
     Indication: BLOOD PRESSURE
     Dosage: 5 MG
  5. PRAVASTATIN [Concomitant]
     Active Substance: PRAVASTATIN\PRAVASTATIN SODIUM
     Indication: BLOOD CHOLESTEROL
     Dosage: 40 MG

REACTIONS (5)
  - Condition aggravated [Unknown]
  - Hyperglycaemia [Unknown]
  - Gangrene [Unknown]
  - Surgery [Unknown]
  - Ulcer [Unknown]

NARRATIVE: CASE EVENT DATE: 20140629
